FAERS Safety Report 9271956 (Version 1)
Quarter: 2013Q2

REPORT INFORMATION
  Report Type: Spontaneous
  Country: FR (occurrence: FR)
  Receive Date: 20130506
  Receipt Date: 20130506
  Transmission Date: 20140414
  Serious: Yes (Hospitalization)
  Sender: FDA-Public Use
  Company Number: FR-009507513-2012SP017910

PATIENT
  Age: 54 Year
  Sex: Male

DRUGS (4)
  1. AERIUS [Suspect]
     Indication: PRURITUS
     Dosage: 1 DF, QD
     Route: 048
     Dates: start: 20100311
  2. NEURONTIN [Suspect]
     Indication: NEURALGIA
     Dosage: 1 DF, BID
     Route: 048
     Dates: start: 20100311, end: 20100318
  3. DAFALGAN [Suspect]
     Indication: BACK PAIN
     Dosage: 1000 MG, TID
     Route: 048
     Dates: start: 20100317
  4. SERESTA [Suspect]
     Indication: ALCOHOL ABUSE
     Dosage: 10 MG, TID
     Route: 048
     Dates: end: 20100316

REACTIONS (2)
  - Erythema [Recovered/Resolved]
  - Pruritus [Recovered/Resolved]
